FAERS Safety Report 13455287 (Version 2)
Quarter: 2017Q2

REPORT INFORMATION
  Report Type: Spontaneous
  Country: US (occurrence: US)
  Receive Date: 20170419
  Receipt Date: 20170421
  Transmission Date: 20170830
  Serious: No
  Sender: FDA-Public Use
  Company Number: US-PFIZER INC-2017164582

PATIENT
  Age: 50 Year
  Sex: Female

DRUGS (5)
  1. AVASTIN [Suspect]
     Active Substance: BEVACIZUMAB
     Dosage: UNK, CYCLIC
     Dates: start: 20140217, end: 20140512
  2. NEULASTA [Suspect]
     Active Substance: PEGFILGRASTIM
     Dosage: UNK
     Dates: start: 20140217, end: 20140512
  3. AVASTIN [Suspect]
     Active Substance: BEVACIZUMAB
     Dosage: UNK
     Dates: start: 201406, end: 201412
  4. CARBOPLATIN. [Suspect]
     Active Substance: CARBOPLATIN
     Dosage: UNK, CYCLIC
     Dates: start: 20140217, end: 20140512
  5. TAXOL [Suspect]
     Active Substance: PACLITAXEL
     Dosage: UNK, CYCLIC (STRENGTH: 200 /M2)
     Dates: start: 20140217, end: 20140512

REACTIONS (6)
  - Condition aggravated [Unknown]
  - Hypoaesthesia [Unknown]
  - Fatigue [Unknown]
  - Proteinuria [Unknown]
  - Depression [Unknown]
  - Neoplasm progression [Unknown]
